FAERS Safety Report 9821762 (Version 1)
Quarter: 2014Q1

REPORT INFORMATION
  Report Type: Spontaneous
  Country: US (occurrence: US)
  Receive Date: 20140116
  Receipt Date: 20140116
  Transmission Date: 20141002
  Serious: No
  Sender: FDA-Public Use
  Company Number: US-PFIZER INC-2014013034

PATIENT
  Age: 44 Year
  Sex: Male
  Weight: 95.24 kg

DRUGS (2)
  1. EFFEXOR XR [Suspect]
     Indication: BIPOLAR DISORDER
     Dosage: 225 MG (75MG X 3), DAILY
  2. TOPAMAX [Concomitant]
     Dosage: 200 MG, 2X/DAY

REACTIONS (4)
  - Drug withdrawal syndrome [Unknown]
  - Dizziness [Unknown]
  - Nausea [Unknown]
  - Tinnitus [Unknown]
